FAERS Safety Report 14966249 (Version 11)
Quarter: 2018Q4

REPORT INFORMATION
  Report Type: Report from Study
  Country: DE (occurrence: DE)
  Receive Date: 20180603
  Receipt Date: 20181114
  Transmission Date: 20190204
  Serious: Yes (Hospitalization, Other)
  Sender: FDA-Public Use
  Company Number: DE-AMGEN-DEUNI2018073713

PATIENT
  Age: 48 Year
  Sex: Male
  Weight: 76 kg

DRUGS (10)
  1. PANITUMUMAB [Suspect]
     Active Substance: PANITUMUMAB
     Indication: COLORECTAL CANCER METASTATIC
     Dosage: 460 MG, UNK
     Route: 042
     Dates: start: 20180516
  2. FOLINIC ACID [Suspect]
     Active Substance: LEUCOVORIN
     Indication: COLORECTAL CANCER METASTATIC
     Dosage: 780 MG, UNK
     Route: 065
     Dates: start: 20180516
  3. FERROSANOL [Concomitant]
     Active Substance: FERROUS GLUCONATE
     Indication: ANAEMIA
     Dosage: 80 MG, TID TO 100 MG, QD
     Route: 048
     Dates: start: 20180514, end: 20181030
  4. FLUOROURACIL. [Suspect]
     Active Substance: FLUOROURACIL
     Dosage: 4650 MG, UNK
     Route: 042
     Dates: start: 20180516
  5. OXALIPLATIN. [Suspect]
     Active Substance: OXALIPLATIN
     Indication: COLORECTAL CANCER METASTATIC
     Dosage: 165 MG, UNK
     Route: 065
     Dates: start: 20180516
  6. FLUOROURACIL. [Suspect]
     Active Substance: FLUOROURACIL
     Indication: COLORECTAL CANCER METASTATIC
     Dosage: 800 MG, UNK
     Route: 040
     Dates: start: 20180516
  7. MONO EMBOLEX [Concomitant]
     Active Substance: CERTOPARIN SODIUM
     Indication: PROPHYLAXIS
     Dosage: 3000 IU, QD
     Route: 058
     Dates: start: 20180412, end: 20180518
  8. DOXY M [Concomitant]
     Indication: PROPHYLAXIS
     Dosage: 100 MG, QD
     Route: 048
     Dates: start: 20180516, end: 20181017
  9. GLANDOMED [Concomitant]
     Indication: PROPHYLAXIS
     Dosage: 20 ML, BID
     Route: 048
     Dates: start: 20180516
  10. PLIAZON [Concomitant]
     Indication: PROPHYLAXIS
     Dosage: UNK UNK, AS NECESSARY
     Route: 061
     Dates: start: 20180516, end: 20181029

REACTIONS (9)
  - Infection [Recovered/Resolved]
  - Epistaxis [Not Recovered/Not Resolved]
  - Mucosal inflammation [Not Recovered/Not Resolved]
  - Dermatitis acneiform [Not Recovered/Not Resolved]
  - Hypertension [Recovered/Resolved]
  - Lymphocyte count decreased [Recovered/Resolved]
  - Hypocalcaemia [Unknown]
  - Constipation [Not Recovered/Not Resolved]
  - Fatigue [Not Recovered/Not Resolved]

NARRATIVE: CASE EVENT DATE: 20180517
